FAERS Safety Report 9852795 (Version 1)
Quarter: 2014Q1

REPORT INFORMATION
  Report Type: Spontaneous
  Country: US (occurrence: None)
  Receive Date: 20140128
  Receipt Date: 20140128
  Transmission Date: 20141002
  Serious: Yes (Hospitalization)
  Sender: FDA-Public Use
  Company Number: None

PATIENT
  Age: 24 Year
  Sex: Male
  Weight: 62.7 kg

DRUGS (1)
  1. CEFUROXIME [Suspect]
     Indication: PYELONEPHRITIS
     Route: 048
     Dates: start: 20140104, end: 20140106

REACTIONS (3)
  - Nausea [None]
  - Diarrhoea [None]
  - Hypokalaemia [None]
